FAERS Safety Report 5621394-5 (Version None)
Quarter: 2008Q1

REPORT INFORMATION
  Report Type: 
  Country: None (occurrence: None)
  Receive Date: 20080211
  Receipt Date: 20080131
  Transmission Date: 20080703
  Serious: Yes (Other)
  Sender: FDA-Public Use
  Company Number: JP-JNJFOC-20071200869

PATIENT
  Sex: Female
  Weight: 60 kg

DRUGS (18)
  1. REMICADE [Suspect]
     Route: 042
  2. REMICADE [Suspect]
     Route: 042
  3. REMICADE [Suspect]
     Route: 042
  4. REMICADE [Suspect]
     Route: 042
  5. REMICADE [Suspect]
     Route: 042
  6. REMICADE [Suspect]
     Route: 042
  7. REMICADE [Suspect]
     Route: 042
  8. REMICADE [Suspect]
     Indication: RHEUMATOID ARTHRITIS
     Dosage: 5 ADDITIONAL INFUSIONS ON UNSPECIFIED DATES
     Route: 042
  9. RHEUMATREX [Concomitant]
     Indication: RHEUMATOID ARTHRITIS
     Route: 048
  10. PREDONINE [Concomitant]
     Route: 048
  11. VOLTAREN [Concomitant]
     Route: 054
  12. MUCOSTA [Concomitant]
     Route: 048
  13. CYTOTEC [Concomitant]
     Route: 048
  14. FOLIAMIN [Concomitant]
     Route: 048
  15. VOLTAREN [Concomitant]
     Route: 048
  16. LASIX [Concomitant]
     Route: 048
  17. VOLTAREN:TAP [Concomitant]
     Route: 048
  18. ADOFEED [Concomitant]

REACTIONS (3)
  - PARALYSIS [None]
  - POLYNEUROPATHY [None]
  - RADIAL NERVE PALSY [None]
